FAERS Safety Report 9775752 (Version 2)
Quarter: 2014Q1

REPORT INFORMATION
  Report Type: Spontaneous
  Country: FR (occurrence: FR)
  Receive Date: 20131220
  Receipt Date: 20140211
  Transmission Date: 20141002
  Serious: Yes (Other)
  Sender: FDA-Public Use
  Company Number: FR-BRISTOL-MYERS SQUIBB COMPANY-19914548

PATIENT
  Age: 37 Year
  Sex: Male

DRUGS (4)
  1. REYATAZ [Suspect]
     Indication: HIV INFECTION
     Route: 048
     Dates: start: 201003
  2. NORVIR [Interacting]
     Indication: HIV INFECTION
  3. KIVEXA [Suspect]
     Indication: HIV INFECTION
     Dosage: OF 600 MG/300 MG
     Dates: start: 201003
  4. KIVEXA [Suspect]
     Indication: HIV INFECTION
     Dosage: 600 MG/300 MG
     Dates: start: 201003

REACTIONS (2)
  - Ocular icterus [Recovered/Resolved]
  - Drug interaction [Unknown]
